FAERS Safety Report 17246249 (Version 1)
Quarter: 2019Q4

REPORT INFORMATION
  Report Type: Spontaneous
  Country: US (occurrence: US)
  Receive Date: 20191213
  Receipt Date: 20191213
  Transmission Date: 20200122
  Serious: No
  Sender: FDA-Public Use
  Company Number: None

PATIENT
  Age: 60 Year
  Sex: Male

DRUGS (18)
  1. METOPROLOL TARTRATE. [Concomitant]
     Active Substance: METOPROLOL TARTRATE
  2. LIALDA [Concomitant]
     Active Substance: MESALAMINE
  3. OXYCODONE AND ACETAMINOPHEN [Concomitant]
     Active Substance: ACETAMINOPHEN\OXYCODONE HYDROCHLORIDE
  4. HUMIRA [Concomitant]
     Active Substance: ADALIMUMAB
  5. IPRATROPIUM [Concomitant]
     Active Substance: IPRATROPIUM
  6. DIAZEPAM. [Concomitant]
     Active Substance: DIAZEPAM
  7. LANTUS [Concomitant]
     Active Substance: INSULIN GLARGINE
  8. FLUTICASONE. [Concomitant]
     Active Substance: FLUTICASONE
  9. HUMIRA [Suspect]
     Active Substance: ADALIMUMAB
     Indication: RESPIRATORY DISORDER
     Dosage: ?          OTHER DOSE:40/0.4 MG/ML;?
     Route: 058
     Dates: start: 20190313
  10. DIPHEN/ATROP [Concomitant]
     Active Substance: ATROPINE SULFATE\DIPHENOXYLATE
  11. PEG [Concomitant]
     Active Substance: POLYETHYLENE GLYCOLS
  12. INSULIN [Concomitant]
     Active Substance: INSULIN NOS
  13. VENTOLIN HFAAER [Concomitant]
  14. AZITHROMYCIN ANHYDROUS. [Concomitant]
     Active Substance: AZITHROMYCIN ANHYDROUS
  15. BENZONATE [Concomitant]
     Active Substance: BENZONATATE
  16. HYDROCO.APAP [Concomitant]
  17. RAMIPRIL. [Concomitant]
     Active Substance: RAMIPRIL
  18. ATORVASTATIN [Concomitant]
     Active Substance: ATORVASTATIN

REACTIONS (1)
  - Myocardial infarction [None]

NARRATIVE: CASE EVENT DATE: 20191213
